FAERS Safety Report 12708329 (Version 3)
Quarter: 2016Q4

REPORT INFORMATION
  Report Type: Spontaneous
  Country: AU (occurrence: AU)
  Receive Date: 20160901
  Receipt Date: 20161007
  Transmission Date: 20170207
  Serious: Yes (Death)
  Sender: FDA-Public Use
  Company Number: AU-FERRINGPH-2016FE04497

PATIENT

DRUGS (2)
  1. CERVIDIL [Suspect]
     Active Substance: DINOPROSTONE
     Indication: INDUCTION OF CERVIX RIPENING
     Dosage: 10 MG, ONCE/SINGLE
     Route: 064
     Dates: start: 20160708, end: 20160709
  2. CERVIDIL [Suspect]
     Active Substance: DINOPROSTONE
     Indication: PRE-ECLAMPSIA

REACTIONS (3)
  - Hypoxic-ischaemic encephalopathy [Fatal]
  - Foetal distress syndrome [Unknown]
  - Product use issue [Fatal]

NARRATIVE: CASE EVENT DATE: 20160708
